FAERS Safety Report 7978206-4 (Version None)
Quarter: 2011Q4

REPORT INFORMATION
  Report Type: 
  Country: None (occurrence: None)
  Receive Date: 20111209
  Receipt Date: 20111125
  Transmission Date: 20120403
  Serious: Yes (Hospitalization)
  Sender: FDA-Public Use
  Company Number: DSA_48311_2011

PATIENT
  Age: 90 Year
  Sex: Female

DRUGS (3)
  1. ARICEPT [Concomitant]
  2. ESCITALOPRAM [Concomitant]
  3. ENALAPRIL MALEATE/HCTZ (ENALAPRIL MALEATE-HCTZ) (NOT SPECIFIED) [Suspect]
     Indication: HYPERTENSION
     Dosage: 1 DF QD ORAL
     Route: 048

REACTIONS (5)
  - VOMITING [None]
  - NAUSEA [None]
  - DIARRHOEA [None]
  - DEHYDRATION [None]
  - RENAL FAILURE [None]
